FAERS Safety Report 10088265 (Version 1)
Quarter: 2014Q2

REPORT INFORMATION
  Report Type: Spontaneous
  Country: FR (occurrence: FR)
  Receive Date: 20140421
  Receipt Date: 20140421
  Transmission Date: 20141212
  Serious: Yes (Hospitalization)
  Sender: FDA-Public Use
  Company Number: FR-ROCHE-1386831

PATIENT
  Age: 71 Year
  Sex: Female

DRUGS (9)
  1. AVASTIN [Suspect]
     Indication: COLORECTAL ADENOCARCINOMA
     Route: 042
     Dates: start: 201104, end: 201111
  2. REGORAFENIB [Suspect]
     Indication: PRODUCT USED FOR UNKNOWN INDICATION
     Route: 048
     Dates: start: 20131209, end: 20131229
  3. XELODA [Concomitant]
     Route: 065
  4. FOLINIC ACID [Concomitant]
  5. FLUOROURACIL [Concomitant]
  6. OXALIPLATIN [Concomitant]
  7. IRINOTECAN [Concomitant]
  8. ERBITUX [Concomitant]
  9. TOMUDEX [Concomitant]

REACTIONS (1)
  - Aortic dissection [Not Recovered/Not Resolved]
